FAERS Safety Report 23849144 (Version 1)
Quarter: 2024Q2

REPORT INFORMATION
  Report Type: Spontaneous
  Country: US (occurrence: US)
  Receive Date: 20240513
  Receipt Date: 20240513
  Transmission Date: 20240716
  Serious: No
  Sender: FDA-Public Use
  Company Number: US-SA-SAC20240509001085

PATIENT
  Sex: Male

DRUGS (6)
  1. DUPIXENT [Suspect]
     Active Substance: DUPILUMAB
     Indication: Dermatitis atopic
     Dosage: 300 MG, QOW
     Route: 058
  2. IVERMECTIN [Concomitant]
     Active Substance: IVERMECTIN
  3. KETOCONAZOLE [Concomitant]
     Active Substance: KETOCONAZOLE
  4. LISINOPRIL [Concomitant]
     Active Substance: LISINOPRIL
  5. SYNTHROID [Concomitant]
     Active Substance: LEVOTHYROXINE SODIUM
  6. HYDROCORTISONE [Concomitant]
     Active Substance: HYDROCORTISONE

REACTIONS (1)
  - Herpes zoster [Not Recovered/Not Resolved]
